FAERS Safety Report 7019138-8 (Version None)
Quarter: 2010Q3

REPORT INFORMATION
  Report Type: 
  Country: None (occurrence: None)
  Receive Date: 20100928
  Receipt Date: 20100922
  Transmission Date: 20110219
  Serious: Yes (Life-Threatening)
  Sender: FDA-Public Use
  Company Number: JP-ELI_LILLY_AND_COMPANY-JP201006007369

PATIENT
  Sex: Male
  Weight: 67 kg

DRUGS (3)
  1. GEMZAR [Suspect]
     Indication: PANCREATIC CARCINOMA STAGE IV
     Dosage: 1700 MG, OTHER
     Route: 042
     Dates: start: 20100414, end: 20100421
  2. DECADRON /00016002/ [Concomitant]
     Indication: PROPHYLAXIS
     Dosage: 3.3 MG, OTHER
     Route: 042
     Dates: start: 20100414, end: 20100421
  3. RAMELTEON [Concomitant]
     Indication: PROPHYLAXIS
     Dosage: 0.3 MG, OTHER
     Route: 042
     Dates: start: 20100414, end: 20100421

REACTIONS (5)
  - GRANULOMA [None]
  - HAEMATOMA [None]
  - PANCREATIC ENLARGEMENT [None]
  - VASCULAR PSEUDOANEURYSM [None]
  - VASCULAR PSEUDOANEURYSM RUPTURED [None]
